FAERS Safety Report 20797734 (Version 2)
Quarter: 2022Q2

REPORT INFORMATION
  Report Type: Spontaneous
  Country: JP (occurrence: JP)
  Receive Date: 20220506
  Receipt Date: 20220510
  Transmission Date: 20220721
  Serious: No
  Sender: FDA-Public Use
  Company Number: JP-PFIZER INC-202200113849

PATIENT
  Age: 68 Year
  Sex: Female
  Weight: 44.6 kg

DRUGS (10)
  1. AXITINIB [Suspect]
     Active Substance: AXITINIB
     Indication: Metastatic renal cell carcinoma
     Dosage: 10 MG, DAILY
     Dates: start: 20200908, end: 20201022
  2. AXITINIB [Suspect]
     Active Substance: AXITINIB
     Dosage: 6 MG, DAILY
     Dates: start: 20201105, end: 20201130
  3. AVELUMAB [Suspect]
     Active Substance: AVELUMAB
     Indication: Metastatic renal cell carcinoma
     Dosage: 10 MG/KG
     Dates: start: 20200908, end: 20201022
  4. AVELUMAB [Suspect]
     Active Substance: AVELUMAB
     Dosage: 10 MG/KG
     Dates: start: 20201105, end: 20201130
  5. TEPRENONE [Concomitant]
     Active Substance: TEPRENONE
     Dosage: UNK
  6. MACTASE S [Concomitant]
     Dosage: UNK
  7. LANSOPRAZOLE [Concomitant]
     Active Substance: LANSOPRAZOLE
     Dosage: UNK
     Route: 048
  8. LANSOPRAZOLE [Concomitant]
     Active Substance: LANSOPRAZOLE
     Dosage: 15 MG, 1X/DAY
  9. ELIQUIS [Concomitant]
     Active Substance: APIXABAN
     Dosage: 5 MG, 2X/DAY
     Dates: start: 20200907, end: 20201105
  10. AMLODIPINE [Concomitant]
     Active Substance: AMLODIPINE BESYLATE
     Dosage: 2.5 MG, 1X/DAY
     Dates: start: 20200911

REACTIONS (30)
  - Diarrhoea [Recovered/Resolved]
  - Alanine aminotransferase increased [Not Recovered/Not Resolved]
  - Aspartate aminotransferase increased [Not Recovered/Not Resolved]
  - Basophil count increased [Recovered/Resolved]
  - Bilirubin conjugated increased [Not Recovered/Not Resolved]
  - Blood albumin decreased [Not Recovered/Not Resolved]
  - Blood chloride decreased [Recovered/Resolved]
  - Blood cholesterol increased [Not Recovered/Not Resolved]
  - Blood lactate dehydrogenase increased [Not Recovered/Not Resolved]
  - Blood potassium increased [Recovered/Resolved]
  - Blood sodium decreased [Recovered/Resolved]
  - Blood uric acid decreased [Not Recovered/Not Resolved]
  - C-reactive protein increased [Not Recovered/Not Resolved]
  - Gamma-glutamyltransferase increased [Not Recovered/Not Resolved]
  - Haematocrit decreased [Not Recovered/Not Resolved]
  - Haemoglobin decreased [Not Recovered/Not Resolved]
  - Chromaturia [Recovered/Resolved]
  - Lymphocyte count decreased [Recovered/Resolved]
  - Mean cell haemoglobin decreased [Not Recovered/Not Resolved]
  - Mean cell haemoglobin concentration decreased [Recovered/Resolved]
  - Monocyte count increased [Recovered/Resolved]
  - Nitrite urine present [Recovered/Resolved]
  - Platelet count increased [Not Recovered/Not Resolved]
  - Protein total abnormal [Not Recovered/Not Resolved]
  - Protein urine present [Not Recovered/Not Resolved]
  - Red blood cell count increased [Recovered/Resolved]
  - Red blood cells urine positive [Not Recovered/Not Resolved]
  - Urinary occult blood positive [Not Recovered/Not Resolved]
  - White blood cell count increased [Not Recovered/Not Resolved]
  - White blood cells urine positive [Recovered/Resolved]

NARRATIVE: CASE EVENT DATE: 20200911
